FAERS Safety Report 6914551-9 (Version None)
Quarter: 2010Q3

REPORT INFORMATION
  Report Type: 
  Country: None (occurrence: None)
  Receive Date: 20100804
  Receipt Date: 20100728
  Transmission Date: 20110219
  Serious: Yes (Other)
  Sender: FDA-Public Use
  Company Number: 20108573

PATIENT
  Sex: Female

DRUGS (1)
  1. LIORESAL [Suspect]
     Indication: MUSCLE SPASTICITY
     Dosage: 1128 MCG, DAILY, INTRATHECAL
     Route: 037

REACTIONS (7)
  - DEVICE RELATED INFECTION [None]
  - DRUG WITHDRAWAL SYNDROME [None]
  - HYPERTONIA [None]
  - IMPLANT SITE EFFUSION [None]
  - MUSCLE SPASTICITY [None]
  - PRURITUS [None]
  - THERAPEUTIC RESPONSE DECREASED [None]
